FAERS Safety Report 16952597 (Version 1)
Quarter: 2019Q4

REPORT INFORMATION
  Report Type: Spontaneous
  Country: US (occurrence: US)
  Receive Date: 20191023
  Receipt Date: 20191023
  Transmission Date: 20200122
  Serious: Yes (Hospitalization)
  Sender: FDA-Public Use
  Company Number: US-HIKMA PHARMACEUTICALS USA INC.-US-H14001-19-05446

PATIENT
  Age: 58 Year
  Sex: Male

DRUGS (1)
  1. ATROPINE. [Suspect]
     Active Substance: ATROPINE
     Indication: BRADYCARDIA
     Route: 065

REACTIONS (3)
  - Respiratory failure [Unknown]
  - Atrial fibrillation [Unknown]
  - Shock [Unknown]
